FAERS Safety Report 5239042-5 (Version None)
Quarter: 2007Q1

REPORT INFORMATION
  Report Type: 
  Country: None (occurrence: None)
  Receive Date: 20070209
  Receipt Date: 20070206
  Transmission Date: 20070707
  Serious: Yes (Hospitalization)
  Sender: FDA-Public Use
  Company Number: CIP07000264

PATIENT
  Sex: Male

DRUGS (2)
  1. ASACOL [Suspect]
     Dosage: UNK, UNK, ORAL
     Route: 048
  2. PREDNISONE TAB [Concomitant]

REACTIONS (1)
  - CLOSTRIDIAL INFECTION [None]
